FAERS Safety Report 5018452-5 (Version None)
Quarter: 2006Q2

REPORT INFORMATION
  Report Type: 
  Country: None (occurrence: None)
  Receive Date: 20060530
  Receipt Date: 20060522
  Transmission Date: 20061013
  Serious: Yes (Other)
  Sender: FDA-Public Use
  Company Number: SU-2006-004693

PATIENT
  Age: 75 Year
  Sex: Male
  Weight: 83.9154 kg

DRUGS (8)
  1. BENICAR [Suspect]
     Indication: HYPERTENSION
     Dosage: MG PO
     Route: 048
  2. DETROL [Suspect]
     Indication: HYPERTONIC BLADDER
     Dosage: 4 MG QD PO
     Route: 048
     Dates: start: 20060201, end: 20060215
  3. CARDURA [Suspect]
     Indication: HYPERTENSION
     Dosage: 4 MG PO
     Route: 048
  4. TRIAMTERENE AND HYDROCHLOROTHIAZIDE [Suspect]
     Indication: HYPERTENSION
     Dosage: MG PO
     Route: 048
  5. TARKA [Suspect]
     Indication: HYPERTENSION
     Dosage: MG PO
     Route: 048
  6. CALCIUM GLUCONATE [Suspect]
     Dosage: MG PO
     Route: 048
  7. ZINC [Concomitant]
  8. FLOMAX [Concomitant]

REACTIONS (5)
  - CONSTIPATION [None]
  - DRUG INTERACTION [None]
  - MICTURITION URGENCY [None]
  - NOCTURIA [None]
  - PROSTATE CANCER STAGE I [None]
